FAERS Safety Report 6254003-5 (Version None)
Quarter: 2009Q3

REPORT INFORMATION
  Report Type: 
  Country: None (occurrence: None)
  Receive Date: 20090702
  Receipt Date: 20090618
  Transmission Date: 20100115
  Serious: Yes (Hospitalization)
  Sender: FDA-Public Use
  Company Number: JP-ROCHE-632508

PATIENT
  Age: 49 Year
  Sex: Male
  Weight: 69 kg

DRUGS (1)
  1. PEGASYS [Suspect]
     Indication: HEPATITIS C
     Route: 058
     Dates: start: 20070327, end: 20071227

REACTIONS (3)
  - ABSCESS BACTERIAL [None]
  - HEPATIC AMOEBIASIS [None]
  - PLEURAL EFFUSION [None]
